FAERS Safety Report 18683131 (Version 2)
Quarter: 2021Q1

REPORT INFORMATION
  Report Type: Spontaneous
  Country: CH (occurrence: CH)
  Receive Date: 20201230
  Receipt Date: 20210114
  Transmission Date: 20210419
  Serious: Yes (Other)
  Sender: FDA-Public Use
  Company Number: CH-TEVA-2020-CH-1864274

PATIENT
  Age: 20 Year
  Sex: Male
  Weight: 60 kg

DRUGS (2)
  1. MEPHAQUIN LACTAB [Suspect]
     Active Substance: MEFLOQUINE HYDROCHLORIDE
     Indication: MALARIA PROPHYLAXIS
     Route: 048
     Dates: start: 200512, end: 2006
  2. LARIAM [Suspect]
     Active Substance: MEFLOQUINE HYDROCHLORIDE
     Indication: MALARIA PROPHYLAXIS
     Route: 048
     Dates: start: 200512, end: 2006

REACTIONS (7)
  - Temperature intolerance [Not Recovered/Not Resolved]
  - Disturbance in attention [Not Recovered/Not Resolved]
  - Hypotension [Not Recovered/Not Resolved]
  - Bedridden [Not Recovered/Not Resolved]
  - Fatigue [Not Recovered/Not Resolved]
  - Malaise [Not Recovered/Not Resolved]
  - Neurological symptom [Not Recovered/Not Resolved]

NARRATIVE: CASE EVENT DATE: 200512
